FAERS Safety Report 21233471 (Version 2)
Quarter: 2022Q3

REPORT INFORMATION
  Report Type: Spontaneous
  Country: US (occurrence: US)
  Receive Date: 20220819
  Receipt Date: 20220826
  Transmission Date: 20221027
  Serious: Yes (Hospitalization, Other)
  Sender: FDA-Public Use
  Company Number: US-CHIESI-2022CHF04185

PATIENT
  Age: 5 Year
  Sex: Female

DRUGS (20)
  1. BETHKIS [Suspect]
     Active Substance: TOBRAMYCIN
     Indication: Cystic fibrosis lung
     Dosage: 300 MILLIGRAM, BID
     Route: 055
     Dates: start: 20220325
  2. BETHKIS [Suspect]
     Active Substance: TOBRAMYCIN
     Indication: Lung disorder
  3. BETHKIS [Suspect]
     Active Substance: TOBRAMYCIN
     Indication: Pseudomonas test positive
  4. BETHKIS [Suspect]
     Active Substance: TOBRAMYCIN
     Indication: Cystic fibrosis
  5. CIPROFLOXACIN [Concomitant]
     Active Substance: CIPROFLOXACIN
     Indication: Cough
     Dosage: UNK
     Route: 048
     Dates: start: 2022
  6. CEFEPIME [Concomitant]
     Active Substance: CEFEPIME HYDROCHLORIDE
     Indication: Product used for unknown indication
     Dosage: 900 MILLIGRAM, Q8H
     Route: 042
     Dates: end: 20220608
  7. ALBUTEROL [Concomitant]
     Active Substance: ALBUTEROL
     Indication: Product used for unknown indication
     Dosage: UNK
     Route: 055
  8. PULMOZYME [Concomitant]
     Active Substance: DORNASE ALFA
     Indication: Product used for unknown indication
     Dosage: 1 DOSAGE FORM, QD
     Route: 055
  9. CETIRIZINE HYDROCHLORIDE [Concomitant]
     Active Substance: CETIRIZINE HYDROCHLORIDE
     Indication: Product used for unknown indication
     Dosage: 0.5 MILLIGRAM, QD
     Route: 048
  10. SINGULAIR [Concomitant]
     Active Substance: MONTELUKAST SODIUM
     Indication: Product used for unknown indication
     Dosage: 1 DOSAGE FORM, HS
     Route: 048
  11. KALYDECO [Concomitant]
     Active Substance: IVACAFTOR
     Indication: Product used for unknown indication
     Dosage: 75 MILLIGRAM, BID
     Route: 048
  12. SODIUM CHLORIDE [Concomitant]
     Active Substance: SODIUM CHLORIDE
     Indication: Product used for unknown indication
     Dosage: 4 MILLILITER, BID
     Route: 048
  13. CYPROHEPTADINE [Concomitant]
     Active Substance: CYPROHEPTADINE
     Indication: Product used for unknown indication
     Dosage: 1 DOSAGE FORM, BID
     Route: 048
  14. MILK OF MAGNESIA [Concomitant]
     Active Substance: MAGNESIUM HYDROXIDE
     Indication: Product used for unknown indication
     Dosage: 20 MILLILITER, QD
     Route: 048
  15. CHOLECALCIFEROL [Concomitant]
     Active Substance: CHOLECALCIFEROL
     Indication: Product used for unknown indication
     Dosage: 1 DOSAGE FORM, QD
     Route: 048
  16. EXLAX [SENNOSIDE A+B] [Concomitant]
     Indication: Product used for unknown indication
     Dosage: 1 DOSAGE FORM, QOD
     Route: 048
  17. IBUPROFEN [Concomitant]
     Active Substance: IBUPROFEN
     Indication: Pyrexia
     Dosage: 7 MILLILITER
     Route: 048
  18. IBUPROFEN [Concomitant]
     Active Substance: IBUPROFEN
     Indication: Pain
  19. TRIAMCINOLONE [Concomitant]
     Active Substance: TRIAMCINOLONE
     Indication: Product used for unknown indication
     Dosage: UNK, BID
     Route: 061
  20. SODIUM CHLORIDE [Concomitant]
     Active Substance: SODIUM CHLORIDE
     Indication: Product used for unknown indication
     Dosage: UNK

REACTIONS (8)
  - Gastroenteritis norovirus [Recovering/Resolving]
  - Gastroenteritis sapovirus [Recovering/Resolving]
  - Clostridium difficile infection [Unknown]
  - Bacterial infection [Recovering/Resolving]
  - Infective pulmonary exacerbation of cystic fibrosis [Recovering/Resolving]
  - Viral upper respiratory tract infection [Recovering/Resolving]
  - Dysphonia [Unknown]
  - Off label use [Not Recovered/Not Resolved]

NARRATIVE: CASE EVENT DATE: 20220325
